FAERS Safety Report 11792968 (Version 1)
Quarter: 2015Q4

REPORT INFORMATION
  Report Type: Spontaneous
  Country: US (occurrence: None)
  Receive Date: 20151130
  Receipt Date: 20151130
  Transmission Date: 20160305
  Serious: Yes (Hospitalization)
  Sender: FDA-Public Use
  Company Number: 2015US-106575

PATIENT
  Age: 64 Year
  Sex: Male
  Weight: 50 kg

DRUGS (1)
  1. ISONIAZID. [Suspect]
     Active Substance: ISONIAZID
     Indication: LATENT TUBERCULOSIS

REACTIONS (5)
  - Liver transplant [None]
  - Coma hepatic [None]
  - Hepatic necrosis [None]
  - Acute hepatic failure [None]
  - Hepatic encephalopathy [None]
